FAERS Safety Report 19799451 (Version 2)
Quarter: 2021Q4

REPORT INFORMATION
  Report Type: Spontaneous
  Country: DE (occurrence: DE)
  Receive Date: 20210907
  Receipt Date: 20211104
  Transmission Date: 20220303
  Serious: Yes (Hospitalization)
  Sender: FDA-Public Use
  Company Number: DE-ADRED-06091-02

PATIENT
  Age: 74 Year
  Sex: Male

DRUGS (17)
  1. PHENPROCOUMON [Suspect]
     Active Substance: PHENPROCOUMON
     Indication: Product used for unknown indication
     Dosage: 3 MILLIGRAM AS NECESSARY(3 MG, NACH INR, TABLETTEN)
  2. SPIRONOLACTONE [Suspect]
     Active Substance: SPIRONOLACTONE
     Indication: Product used for unknown indication
     Dosage: 50 MILLIGRAM, QD(50 MG, 1-0-0-0, TABLETTEN)
  3. FUROSEMIDE [Suspect]
     Active Substance: FUROSEMIDE
     Indication: Product used for unknown indication
     Dosage: 40 MILLIGRAM
  4. RAMIPRIL [Suspect]
     Active Substance: RAMIPRIL
     Indication: Product used for unknown indication
     Dosage: 10 MILLIGRAM, QD (10 MG, 1-0-0-0, TABLETTEN)
  5. PANTOPRAZOL                        /01263201/ [Concomitant]
     Dosage: 40 MILLIGRAM, QD(40 MG, 1-0-0-0, TABLETTEN)
  6. SITAGLIPTIN [Concomitant]
     Active Substance: SITAGLIPTIN
     Dosage: 100 MILLIGRAM, QD(100 MG, 1-0-0-0, TABLETTEN)
  7. ALLOPURINOL [Concomitant]
     Active Substance: ALLOPURINOL
     Dosage: 300 MILLIGRAM, QD(300 MG, 1-0-0-0, TABLETTEN)
  8. NEUPRO [Concomitant]
     Active Substance: ROTIGOTINE
     Dosage: 4 MILLIGRAM, QD (PFLASTER TRANSDERMAL)
     Route: 062
  9. BENSERAZIDE HYDROCHLORIDE\LEVODOPA [Concomitant]
     Active Substance: BENSERAZIDE HYDROCHLORIDE\LEVODOPA
     Dosage: 1 DOSAGE FORM, QD(25|100 MG, 1-0-0-0, TABLETTE ZUR HERSTELLUNG EINER
  10. NITRENDIPINE [Concomitant]
     Active Substance: NITRENDIPINE
     Dosage: 10 MILLIGRAM, QD(10 MG, 1-0-1-0, TABLETTEN)
  11. TAMSULOSIN [Concomitant]
     Active Substance: TAMSULOSIN
     Dosage: 0.4 MILLIGRAM, QD(0.4 MG, 0-0-1-0, TABLETTEN)
  12. CARBIDOPA\LEVODOPA [Concomitant]
     Active Substance: CARBIDOPA\LEVODOPA
     Dosage: 1 DOSAGE FORM, QD(50|200 MG, 0-0-0-1, RETARD-TABLETTEN)
  13. METFORMIN [Concomitant]
     Active Substance: METFORMIN HYDROCHLORIDE
     Dosage: 500 MILLIGRAM Q12H (500 MG, 1-0-1-0, TABLETTEN)
  14. METAMIZOL                          /06276701/ [Concomitant]
     Dosage: 500 MILLIGRAM AS NECESSARY (500 MG, BEI BEDARF BIS ZU 4
  15. BROMAZEPAM [Concomitant]
     Active Substance: BROMAZEPAM
     Dosage: 1.5 MILLIGRAM AS NECESSARY (1.5 MG, BEI BEDARF, TABLETTEN)
  16. BISOPROLOL [Concomitant]
     Active Substance: BISOPROLOL
     Dosage: 5 MILLIGRAM Q12H (5 MG, 1-0-1-0, TABLETTEN)
  17. BENSERAZIDE\LEVODOPA [Concomitant]
     Active Substance: BENSERAZIDE\LEVODOPA
     Dosage: 3 DOSAGE FORM, QD (25|100 MG, 1-1-1-0, TABLETTEN)
     Route: 048

REACTIONS (3)
  - Anaemia [Unknown]
  - Electrolyte imbalance [Unknown]
  - Blood creatinine increased [Unknown]
